FAERS Safety Report 10741142 (Version 1)
Quarter: 2015Q1

REPORT INFORMATION
  Report Type: Report from Study
  Country: DE (occurrence: DE)
  Receive Date: 20150127
  Receipt Date: 20150127
  Transmission Date: 20150721
  Serious: Yes (Death, Life-Threatening, Hospitalization, Other)
  Sender: FDA-Public Use
  Company Number: DE-TAKEDA-2012-02188

PATIENT

DRUGS (7)
  1. TIGACIL [Concomitant]
     Dosage: 100 MG, BID
     Dates: start: 20120309, end: 20120409
  2. VORICONAZOLE. [Concomitant]
     Active Substance: VORICONAZOLE
     Dosage: 400 MG, BID
     Dates: start: 20120309, end: 20120409
  3. L-THYROXIN [Concomitant]
     Active Substance: LEVOTHYROXINE SODIUM
     Dosage: 100 MG, QD
     Dates: end: 20120409
  4. ACYCLOVIR                          /00587301/ [Concomitant]
     Active Substance: ACYCLOVIR
     Indication: ANTIVIRAL PROPHYLAXIS
     Dosage: 500 MG, BID
     Dates: start: 201108, end: 20120409
  5. NEUPOGEN [Concomitant]
     Active Substance: FILGRASTIM
     Dosage: UNK
     Route: 058
     Dates: start: 20120309, end: 20120409
  6. VELCADE [Suspect]
     Active Substance: BORTEZOMIB
     Indication: PLASMA CELL MYELOMA
     Dosage: 1.3 MG/M2, CYCLIC
     Route: 042
     Dates: start: 20110823, end: 20111028
  7. MERONEM [Concomitant]
     Active Substance: MEROPENEM
     Dosage: 100 MG, TID
     Dates: start: 20120309, end: 20120409

REACTIONS (2)
  - Sepsis [Fatal]
  - Pneumonia fungal [Fatal]

NARRATIVE: CASE EVENT DATE: 20120322
